FAERS Safety Report 5835272-X (Version None)
Quarter: 2008Q3

REPORT INFORMATION
  Report Type: 
  Country: None (occurrence: None)
  Receive Date: 20080731
  Receipt Date: 20080718
  Transmission Date: 20090109
  Serious: Yes (Death)
  Sender: FDA-Public Use
  Company Number: B0530937A

PATIENT
  Age: 53 Year
  Sex: Male

DRUGS (4)
  1. MELPHALAN [Suspect]
     Indication: BONE MARROW TRANSPLANT
  2. CYCLOSPORINE [Suspect]
     Indication: SECONDARY IMMUNODEFICIENCY
  3. CORTICOSTEROID (FORMULATION UNKNOWN) (CORTICOSTEROID) [Suspect]
     Indication: SECONDARY IMMUNODEFICIENCY
  4. MYCOPHENOLATE MOFETIL (FORMULATION UNKNOWN) (MYCOPHENOLATE MOFETIL) [Suspect]
     Indication: SECONDARY IMMUNODEFICIENCY

REACTIONS (9)
  - AMYLOIDOSIS [None]
  - CACHEXIA [None]
  - CONDITION AGGRAVATED [None]
  - GENERAL PHYSICAL HEALTH DETERIORATION [None]
  - MELANOCYTIC NAEVUS [None]
  - METASTASES TO LYMPH NODES [None]
  - METASTATIC MALIGNANT MELANOMA [None]
  - PAPILLOMA [None]
  - SPIDER NAEVUS [None]
